FAERS Safety Report 23813425 (Version 4)
Quarter: 2024Q2

REPORT INFORMATION
  Report Type: Spontaneous
  Country: CA (occurrence: CA)
  Receive Date: 20240503
  Receipt Date: 20240625
  Transmission Date: 20240716
  Serious: Yes (Other)
  Sender: FDA-Public Use
  Company Number: CA-CELLTRION INC.-2024CA010173

PATIENT

DRUGS (13)
  1. INFLECTRA [Suspect]
     Active Substance: INFLIXIMAB-DYYB
     Indication: Crohn^s disease
     Dosage: 300 MG, W 0, 2, 6, THEN EVERY 8 WEEKS
     Route: 042
     Dates: start: 20240227
  2. INFLECTRA [Suspect]
     Active Substance: INFLIXIMAB-DYYB
     Dosage: 300 MG, W 0, 2, 6, THEN EVERY 8 WEEKS
     Route: 042
     Dates: start: 20240325
  3. INFLECTRA [Suspect]
     Active Substance: INFLIXIMAB-DYYB
     Dosage: 300 MG, W 0, 2, 6, THEN EVERY 8 WEEKS
     Route: 042
     Dates: start: 20240422
  4. INFLECTRA [Suspect]
     Active Substance: INFLIXIMAB-DYYB
     Dosage: 300 MG, Q 0,2,6, THEN EVERY 8 WEEKS
     Route: 042
     Dates: start: 20240617
  5. ATIVAN [Concomitant]
     Active Substance: LORAZEPAM
     Dosage: 1 DF (UNKNOWN DOSE)
     Route: 065
  6. BUSPIRONE [Concomitant]
     Active Substance: BUSPIRONE HYDROCHLORIDE
     Dosage: 1 DF, 2X/DAY, (DOSE: 2.5-5MG BID)
     Route: 065
  7. ENTOCORT [Concomitant]
     Active Substance: BUDESONIDE
     Dosage: 6 MG, 1X/DAY
     Route: 065
  8. ESCITALOPRAM [Concomitant]
     Active Substance: ESCITALOPRAM OXALATE
     Dosage: 15 MG, 1X/DAY
     Route: 065
  9. FOLIC ACID [Concomitant]
     Active Substance: FOLIC ACID
     Dosage: 1 MG, 1X/DAY
     Route: 065
  10. INDERAL [Concomitant]
     Active Substance: PROPRANOLOL HYDROCHLORIDE
     Dosage: 30 MG, 1X/DAY
     Route: 065
  11. QUETIAPINE [Concomitant]
     Active Substance: QUETIAPINE
     Dosage: 1 DF, 1X/DAY, (DOSE: 6.25-12.25 MG QHS)
     Route: 065
  12. SUMATRIPTAN [Concomitant]
     Active Substance: SUMATRIPTAN
     Dosage: 1 DF (UNKNOWN DOSE)
     Route: 065
  13. THYROXINE [Concomitant]
     Active Substance: LEVOTHYROXINE
     Dosage: 112 UG, 1X/DAY
     Route: 065

REACTIONS (6)
  - Condition aggravated [Not Recovered/Not Resolved]
  - Anal fissure [Not Recovered/Not Resolved]
  - Anal haemorrhage [Recovered/Resolved]
  - Proctalgia [Unknown]
  - Arthralgia [Not Recovered/Not Resolved]
  - Fatigue [Unknown]

NARRATIVE: CASE EVENT DATE: 20240325
